FAERS Safety Report 5110322-7 (Version None)
Quarter: 2006Q3

REPORT INFORMATION
  Report Type: 
  Country: None (occurrence: None)
  Receive Date: 20060921
  Receipt Date: 20060824
  Transmission Date: 20061208
  Serious: Yes (Death, Other)
  Sender: FDA-Public Use
  Company Number: PHBS2006NO12837

PATIENT
  Sex: Female

DRUGS (3)
  1. VOLTAREN [Suspect]
     Dosage: 50 MG 2 TO 3 TIMES PER DAY
  2. TAXOL [Suspect]
     Indication: NEOPLASM MALIGNANT
     Dosage: UNK, QW
  3. MORPHINE [Concomitant]
     Dosage: 10 MG/DAY

REACTIONS (2)
  - BREAST CANCER METASTATIC [None]
  - RED BLOOD CELL COUNT DECREASED [None]
